FAERS Safety Report 13242284 (Version 1)
Quarter: 2017Q1

REPORT INFORMATION
  Report Type: Spontaneous
  Country: US (occurrence: US)
  Receive Date: 20170216
  Receipt Date: 20170216
  Transmission Date: 20170428
  Serious: Yes (Other)
  Sender: FDA-Public Use
  Company Number: US-SHIRE-US201702536

PATIENT
  Sex: Female
  Weight: 95.24 kg

DRUGS (1)
  1. PENTASA [Suspect]
     Active Substance: MESALAMINE
     Indication: GASTROINTESTINAL INFECTION
     Dosage: 2000 MG, 2X/DAY:BID
     Route: 048
     Dates: start: 2012

REACTIONS (4)
  - Nasopharyngitis [Not Recovered/Not Resolved]
  - Hypertension [Not Recovered/Not Resolved]
  - Product use issue [Not Recovered/Not Resolved]
  - Diabetes mellitus [Not Recovered/Not Resolved]

NARRATIVE: CASE EVENT DATE: 2012
